FAERS Safety Report 9994488 (Version 4)
Quarter: 2014Q2

REPORT INFORMATION
  Report Type: Spontaneous
  Country: DE (occurrence: DE)
  Receive Date: 20140311
  Receipt Date: 20140619
  Transmission Date: 20141212
  Serious: Yes (Life-Threatening)
  Sender: FDA-Public Use
  Company Number: DE-BIOGENIDEC-2014BI019252

PATIENT
  Age: 56 Year
  Sex: Female
  Weight: 53 kg

DRUGS (4)
  1. TECFIDERA [Suspect]
     Indication: MULTIPLE SCLEROSIS
     Route: 048
     Dates: start: 20140218, end: 20140218
  2. OXYBUTYNIN [Concomitant]
     Indication: ARTHROPATHY
  3. LYRICA [Concomitant]
  4. ARCOXIA [Concomitant]

REACTIONS (1)
  - Anaphylactic shock [Recovered/Resolved]
